FAERS Safety Report 9156615 (Version 1)
Quarter: 2013Q1

REPORT INFORMATION
  Report Type: Spontaneous
  Country: US (occurrence: None)
  Receive Date: 20130208
  Receipt Date: 20130208
  Transmission Date: 20140127
  Serious: Yes (Disabling)
  Sender: FDA-Public Use
  Company Number: ACO_27372_2011

PATIENT
  Age: 60 Year
  Sex: Female
  Weight: 79.4 kg

DRUGS (4)
  1. AMPYRA (DALFAMPRIDINE) TABLET, 10MG [Suspect]
     Indication: GAIT DISTURBANCE
     Route: 048
     Dates: start: 201101, end: 201104
  2. AVONEX (INTERFERON BETA-1A) [Concomitant]
  3. BACLOFEN (BACLOFEN) (BACLOFEN) [Suspect]
  4. TIZANIDINE (TIZANIDINE HYDROCHLORIDE) [Concomitant]

REACTIONS (7)
  - Muscular weakness [None]
  - Gait disturbance [None]
  - Arthralgia [None]
  - Pain in extremity [None]
  - Asthenia [None]
  - Balance disorder [None]
  - Inappropriate schedule of drug administration [None]
